FAERS Safety Report 5396670-4 (Version None)
Quarter: 2007Q3

REPORT INFORMATION
  Report Type: 
  Country: None (occurrence: None)
  Receive Date: 20070725
  Receipt Date: 20070719
  Transmission Date: 20080115
  Serious: Yes (Hospitalization)
  Sender: FDA-Public Use
  Company Number: B0480373A

PATIENT
  Age: 85 Year
  Sex: Male

DRUGS (4)
  1. LANOXIN [Suspect]
     Indication: CONGESTIVE CARDIOMYOPATHY
     Route: 048
     Dates: start: 20020101, end: 20050401
  2. FUROSEMIDE INTENSOL [Concomitant]
  3. POTASSIUM CANRENOATE [Concomitant]
  4. RAMIPRIL [Concomitant]

REACTIONS (3)
  - ASTHENIA [None]
  - CARDIAC FAILURE [None]
  - HYPOTENSION [None]
